FAERS Safety Report 10847335 (Version 2)
Quarter: 2015Q1

REPORT INFORMATION
  Report Type: Spontaneous
  Country: US (occurrence: US)
  Receive Date: 20150220
  Receipt Date: 20150309
  Transmission Date: 20150721
  Serious: No
  Sender: FDA-Public Use
  Company Number: US-PFIZER INC-2015066888

PATIENT
  Age: 62 Year
  Sex: Female

DRUGS (3)
  1. AROMASIN [Suspect]
     Active Substance: EXEMESTANE
     Indication: BREAST CANCER METASTATIC
     Dosage: UNK
     Dates: start: 201311, end: 201405
  2. ZOMETA [Suspect]
     Active Substance: ZOLEDRONIC ACID
     Dosage: UNK
     Dates: start: 201411
  3. ZOMETA [Suspect]
     Active Substance: ZOLEDRONIC ACID
     Dosage: UNK
     Dates: end: 201402

REACTIONS (6)
  - Tooth disorder [Unknown]
  - Urinary tract disorder [Unknown]
  - Uterine prolapse [Unknown]
  - Disease progression [Recovered/Resolved]
  - Breast cancer metastatic [Recovered/Resolved]
  - Urinary tract pain [Unknown]

NARRATIVE: CASE EVENT DATE: 201405
